FAERS Safety Report 23792889 (Version 1)
Quarter: 2024Q2

REPORT INFORMATION
  Report Type: Report from Study
  Country: ZA (occurrence: ZA)
  Receive Date: 20240429
  Receipt Date: 20240429
  Transmission Date: 20240715
  Serious: Yes (Death)
  Sender: FDA-Public Use
  Company Number: ZA-ABBVIE-5736292

PATIENT
  Sex: Male

DRUGS (1)
  1. OZURDEX [Suspect]
     Active Substance: DEXAMETHASONE
     Indication: Neovascular age-related macular degeneration
     Dosage: TIME INTERVAL: AS NECESSARY: STRENGTH: 0.7MG, FREQUENCY: EVERY 6 MONTH
     Route: 050

REACTIONS (1)
  - Death [Fatal]
